FAERS Safety Report 5363043-X (Version None)
Quarter: 2007Q2

REPORT INFORMATION
  Report Type: 
  Country: None (occurrence: None)
  Receive Date: 20070618
  Receipt Date: 20070612
  Transmission Date: 20071010
  Serious: Yes (Other)
  Sender: FDA-Public Use
  Company Number: 2006002008

PATIENT
  Age: 95 Year
  Sex: Male

DRUGS (4)
  1. MACUGEN [Suspect]
     Indication: CHOROIDAL NEOVASCULARISATION
     Dosage: (Q 6 WKS), INTRA-VITREAL
     Dates: start: 20051102
  2. WARFARIN SODIUM [Concomitant]
  3. SYNTHROID [Concomitant]
  4. NORVASC [Concomitant]

REACTIONS (2)
  - EYE OPERATION COMPLICATION [None]
  - EYE PAIN [None]
